FAERS Safety Report 19098460 (Version 2)
Quarter: 2021Q2

REPORT INFORMATION
  Report Type: Spontaneous
  Country: US (occurrence: US)
  Receive Date: 20210406
  Receipt Date: 20210421
  Transmission Date: 20210717
  Serious: Yes (Other)
  Sender: FDA-Public Use
  Company Number: US-PFIZER INC-2020251387

PATIENT
  Age: 71 Year
  Sex: Male
  Weight: 90.72 kg

DRUGS (1)
  1. NARDIL [Suspect]
     Active Substance: PHENELZINE SULFATE
     Indication: DEPRESSION
     Dosage: UNK

REACTIONS (6)
  - Cerebral disorder [Unknown]
  - Intentional product misuse [Unknown]
  - Anxiety [Unknown]
  - Product dose omission in error [Unknown]
  - Fatigue [Unknown]
  - Toxicity to various agents [Unknown]
